FAERS Safety Report 5061238-6 (Version None)
Quarter: 2006Q3

REPORT INFORMATION
  Report Type: 
  Country: None (occurrence: None)
  Receive Date: 20060720
  Receipt Date: 20060707
  Transmission Date: 20061208
  Serious: Yes (Hospitalization)
  Sender: FDA-Public Use
  Company Number: 2006085817

PATIENT
  Age: 78 Year
  Sex: Male
  Weight: 70 kg

DRUGS (7)
  1. SUTENT [Suspect]
     Indication: RENAL CELL CARCINOMA STAGE UNSPECIFIED
     Dosage: 50 MG (50 MG, FREQUENCY:  DAILY CYCLIC), ORAL
     Route: 048
     Dates: start: 20060410, end: 20060503
  2. DORZOLAMIDE                (DORZOLAMIDE) [Concomitant]
  3. LATANOPROST [Concomitant]
  4. DERMOVATE          (CLOBETASOL PROPIONATE) [Concomitant]
  5. BETNOVATE      (BETAMETHASONE) [Concomitant]
  6. EXOREX           (COAL TAR) [Concomitant]
     Route: 059
  7. ACETAMINOPHEN [Concomitant]

REACTIONS (3)
  - ASTHENIA [None]
  - DENERVATION ATROPHY [None]
  - PAIN IN EXTREMITY [None]
